FAERS Safety Report 7690979-7 (Version None)
Quarter: 2011Q3

REPORT INFORMATION
  Report Type: 
  Country: None (occurrence: None)
  Receive Date: 20110818
  Receipt Date: 20110811
  Transmission Date: 20111222
  Serious: Yes (Other)
  Sender: FDA-Public Use
  Company Number: TR-PFIZER INC-2011186116

PATIENT
  Age: 71 Year
  Sex: Female

DRUGS (2)
  1. OMEPRAZOLE [Concomitant]
  2. METRONIDAZOLE [Suspect]

REACTIONS (1)
  - ELECTROCARDIOGRAM QT PROLONGED [None]
